FAERS Safety Report 15962926 (Version 1)
Quarter: 2019Q1

REPORT INFORMATION
  Report Type: Report from Study
  Country: None (occurrence: US)
  Receive Date: 20190214
  Receipt Date: 20190214
  Transmission Date: 20190417
  Serious: Yes (Other)
  Sender: FDA-Public Use
  Company Number: US-ABBVIE-18K-163-2589824-00

PATIENT
  Sex: Male

DRUGS (1)
  1. HUMIRA [Suspect]
     Active Substance: ADALIMUMAB
     Indication: PSORIASIS
     Route: 058

REACTIONS (7)
  - Type 1 diabetes mellitus [Unknown]
  - Cholelithiasis [Unknown]
  - Dry skin [Unknown]
  - Thyroid disorder [Unknown]
  - Cholecystitis infective [Unknown]
  - Feeling abnormal [Unknown]
  - Loss of consciousness [Unknown]
